FAERS Safety Report 9466837 (Version 2)
Quarter: 2013Q3

REPORT INFORMATION
  Report Type: Spontaneous
  Country: GB (occurrence: GB)
  Receive Date: 20130820
  Receipt Date: 20130829
  Transmission Date: 20140515
  Serious: Yes (Hospitalization, Other)
  Sender: FDA-Public Use
  Company Number: GB-BANPHARM-20131574

PATIENT
  Age: 77 Year
  Sex: Female

DRUGS (15)
  1. IBUPROFEN UNKNOWN PRODUCT [Suspect]
     Indication: ARTHRALGIA
     Dosage: 300 MG, TID,
     Route: 048
     Dates: end: 20130717
  2. WARFARIN SODIUM [Suspect]
     Indication: PULMONARY EMBOLISM
     Route: 048
     Dates: start: 20130706
  3. ALENDRONIC ACID [Concomitant]
  4. AMLODIPINE [Concomitant]
  5. ATENOLOL [Concomitant]
  6. GABAPENTIN [Concomitant]
  7. LEVOTHYROXINE [Concomitant]
  8. MACROGOL [Concomitant]
  9. OMEPRAZOLE [Concomitant]
  10. ONDANSETRON [Concomitant]
  11. ORAMORPH [Concomitant]
  12. PARACETAMOL [Concomitant]
  13. PREDNISOLONE [Concomitant]
  14. SIMVASTATIN [Concomitant]
  15. ZOMORPH [Concomitant]

REACTIONS (3)
  - Diarrhoea [Recovered/Resolved]
  - Drug interaction [Recovered/Resolved]
  - Vomiting [Recovered/Resolved]
